FAERS Safety Report 9783142 (Version 1)
Quarter: 2013Q4

REPORT INFORMATION
  Report Type: Spontaneous
  Country: FR (occurrence: FR)
  Receive Date: 20131226
  Receipt Date: 20131226
  Transmission Date: 20140711
  Serious: Yes (Life-Threatening, Hospitalization)
  Sender: FDA-Public Use
  Company Number: FR-PFIZER INC-2013367897

PATIENT
  Age: 76 Year
  Sex: Female

DRUGS (16)
  1. CORDARONE [Suspect]
     Dosage: 200 MG, DAILY
     Route: 048
     Dates: start: 20130914
  2. PRADAXA [Interacting]
     Indication: ATRIAL FIBRILLATION
     Dosage: 1 CAPSULE TWICE DAILY
     Route: 048
     Dates: start: 20130913, end: 20130921
  3. CYMBALTA [Suspect]
     Dosage: 1 TABLET DAILY
     Route: 048
  4. BISOCE [Concomitant]
     Dosage: UNK
  5. LASILIX FAIBLE [Concomitant]
     Dosage: UNK
  6. IMOVANE [Concomitant]
     Dosage: UNK
  7. MOVICOL [Concomitant]
     Dosage: UNK
  8. INEXIUM [Concomitant]
     Dosage: UNK
  9. EBIXA [Concomitant]
     Dosage: UNK
  10. X-PREP [Concomitant]
     Dosage: UNK
     Dates: start: 20130920
  11. DOMPERIDONE [Concomitant]
     Dosage: UNK
  12. FOLIC ACID [Concomitant]
     Dosage: UNK
  13. DIFFU K [Concomitant]
     Dosage: UNK
  14. ALDACTONE [Concomitant]
     Dosage: UNK
  15. NORMACOL [Concomitant]
     Dosage: UNK
  16. EDUCTYL [Concomitant]
     Dosage: UNK

REACTIONS (3)
  - Drug interaction [Recovered/Resolved]
  - Gastroduodenal ulcer [Recovered/Resolved]
  - Gastrointestinal haemorrhage [Recovered/Resolved]
